FAERS Safety Report 4664198-2 (Version None)
Quarter: 2005Q2

REPORT INFORMATION
  Report Type: 
  Country: None (occurrence: None)
  Receive Date: 20050516
  Receipt Date: 20050516
  Transmission Date: 20051028
  Serious: Yes (Hospitalization)
  Sender: FDA-Public Use
  Company Number: None

PATIENT
  Age: 70 Year
  Sex: Male
  Weight: 84.5 kg

DRUGS (6)
  1. TERAZOSIN [Suspect]
     Indication: HYPERTENSION
     Dosage: 2 MG  PO  QHS
     Route: 048
     Dates: start: 19991201
  2. LISINOPRIL [Suspect]
     Indication: BENIGN PROSTATIC HYPERPLASIA
     Dosage: 10 MG  PO  DAILY
     Route: 048
     Dates: start: 20000901
  3. SOTALOL [Suspect]
     Indication: ATRIAL FIBRILLATION
     Dosage: 80 MG PO
     Route: 048
     Dates: start: 19991201
  4. GEMFIBROZIL [Concomitant]
  5. LORATADINE [Concomitant]
  6. PIROXICAM [Concomitant]

REACTIONS (3)
  - BLOOD PRESSURE ORTHOSTATIC DECREASED [None]
  - DIZZINESS [None]
  - HEART RATE INCREASED [None]
